FAERS Safety Report 15975312 (Version 3)
Quarter: 2019Q4

REPORT INFORMATION
  Report Type: Report from Study
  Country: CA (occurrence: CA)
  Receive Date: 20190218
  Receipt Date: 20191126
  Transmission Date: 20200122
  Serious: Yes (Other)
  Sender: FDA-Public Use
  Company Number: CA-ROCHE-2261488

PATIENT
  Age: 74 Year
  Sex: Female

DRUGS (20)
  1. DOXORUBICIN [Suspect]
     Active Substance: DOXORUBICIN
     Indication: NON-HODGKIN^S LYMPHOMA
     Route: 065
     Dates: start: 2013
  2. ATORVASTATIN [Concomitant]
     Active Substance: ATORVASTATIN
  3. PANTOPRAZOLE [Concomitant]
     Active Substance: PANTOPRAZOLE
  4. VINCRISTINE [Suspect]
     Active Substance: VINCRISTINE
     Indication: NON-HODGKIN^S LYMPHOMA
     Route: 065
     Dates: start: 2013
  5. FUROSEMIDE. [Concomitant]
     Active Substance: FUROSEMIDE
  6. RISEDRONATE [Concomitant]
     Active Substance: RISEDRONATE SODIUM
  7. GABAPENTIN. [Concomitant]
     Active Substance: GABAPENTIN
  8. SYNTHROID [Concomitant]
     Active Substance: LEVOTHYROXINE SODIUM
  9. PREDNISOLONE. [Suspect]
     Active Substance: PREDNISOLONE
     Indication: NON-HODGKIN^S LYMPHOMA
     Route: 065
     Dates: start: 2013
  10. BIOTIN [Concomitant]
     Active Substance: BIOTIN
  11. AMLODIPINE [Concomitant]
     Active Substance: AMLODIPINE BESYLATE
  12. RAMIPRIL. [Concomitant]
     Active Substance: RAMIPRIL
     Route: 065
  13. VITAMIN B12 [VITAMIN B12 NOS] [Concomitant]
     Active Substance: CYANOCOBALAMIN
  14. AMIODARONE [Concomitant]
     Active Substance: AMIODARONE
     Route: 065
  15. VENLAFAXINE [Concomitant]
     Active Substance: VENLAFAXINE HYDROCHLORIDE
  16. TYLENOL EXTRA STRENGTH [Concomitant]
     Active Substance: ACETAMINOPHEN
  17. RITUXAN [Suspect]
     Active Substance: RITUXIMAB
     Indication: NON-HODGKIN^S LYMPHOMA
     Route: 065
     Dates: start: 2013
  18. CYCLOPHOSPHAMIDE. [Suspect]
     Active Substance: CYCLOPHOSPHAMIDE
     Indication: NON-HODGKIN^S LYMPHOMA
     Route: 065
     Dates: start: 2013
  19. VITAMIN B2 [RIBOFLAVIN] [Concomitant]
  20. XARELTO [Concomitant]
     Active Substance: RIVAROXABAN

REACTIONS (19)
  - Walking aid user [Not Recovered/Not Resolved]
  - Vomiting [Unknown]
  - Blood pressure diastolic abnormal [Unknown]
  - Seasonal allergy [Not Recovered/Not Resolved]
  - Neuropathy peripheral [Not Recovered/Not Resolved]
  - Hypothyroidism [Not Recovered/Not Resolved]
  - Lymphadenopathy [Unknown]
  - Dyspnoea [Not Recovered/Not Resolved]
  - Angina pectoris [Unknown]
  - Oxygen saturation decreased [Unknown]
  - Hypertension [Not Recovered/Not Resolved]
  - Nausea [Unknown]
  - Blood pressure systolic increased [Unknown]
  - Osteoporosis [Not Recovered/Not Resolved]
  - Food allergy [Not Recovered/Not Resolved]
  - Asthenia [Unknown]
  - Immunodeficiency [Unknown]
  - Cryoglobulinaemia [Not Recovered/Not Resolved]
  - Spinal stenosis [Not Recovered/Not Resolved]

NARRATIVE: CASE EVENT DATE: 20190306
